FAERS Safety Report 8382821-6 (Version None)
Quarter: 2012Q2

REPORT INFORMATION
  Report Type: 
  Country: None (occurrence: None)
  Receive Date: 20120524
  Receipt Date: 20120510
  Transmission Date: 20120825
  Serious: Yes (Other)
  Sender: FDA-Public Use
  Company Number: SE-JNJFOC-20120510242

PATIENT
  Age: 40 Year
  Sex: Male

DRUGS (2)
  1. PALIPERIDONE [Suspect]
     Indication: PSYCHOTIC DISORDER
     Route: 030
  2. PALIPERIDONE [Suspect]
     Route: 030

REACTIONS (1)
  - AGGRESSION [None]
